FAERS Safety Report 16765968 (Version 1)
Quarter: 2019Q3

REPORT INFORMATION
  Report Type: Spontaneous
  Country: SA (occurrence: SA)
  Receive Date: 20190903
  Receipt Date: 20190903
  Transmission Date: 20191005
  Serious: Yes (Death, Hospitalization, Other)
  Sender: FDA-Public Use
  Company Number: SA-INDOCO-000050

PATIENT
  Age: 55 Year
  Sex: Female

DRUGS (6)
  1. ALLOPURINOL. [Suspect]
     Active Substance: ALLOPURINOL
     Indication: GOUT
  2. MERCAPTOPURINE/MERCAPTOPURINE ANHYDROUS [Interacting]
     Active Substance: MERCAPTOPURINE
     Indication: COLITIS ULCERATIVE
  3. FLUOXETINE [Concomitant]
     Active Substance: FLUOXETINE HYDROCHLORIDE
     Indication: DEPRESSION
  4. IBUPROFEN. [Concomitant]
     Active Substance: IBUPROFEN
     Indication: BACK PAIN
     Dosage: AS NEEDED
  5. METFORMIN [Concomitant]
     Active Substance: METFORMIN HYDROCHLORIDE
     Indication: TYPE 2 DIABETES MELLITUS
  6. GLIPIZIDE. [Concomitant]
     Active Substance: GLIPIZIDE
     Indication: TYPE 2 DIABETES MELLITUS

REACTIONS (5)
  - Drug interaction [Fatal]
  - Staphylococcal infection [Fatal]
  - Sepsis [Fatal]
  - Pancytopenia [Fatal]
  - Medication error [Fatal]
